FAERS Safety Report 9341286 (Version 1)
Quarter: 2013Q2

REPORT INFORMATION
  Report Type: Spontaneous
  Country: CN (occurrence: CN)
  Receive Date: 20130611
  Receipt Date: 20130611
  Transmission Date: 20140414
  Serious: Yes (Other)
  Sender: FDA-Public Use
  Company Number: CN-ASTRAZENECA-2013SE35003

PATIENT
  Age: 78 Year
  Sex: Male

DRUGS (5)
  1. NEXIUM [Suspect]
     Indication: GASTROOESOPHAGEAL REFLUX DISEASE
     Dosage: 20 MD QD SOMETIMES
     Route: 048
  2. NEXIUM [Suspect]
     Indication: GASTROOESOPHAGEAL REFLUX DISEASE
     Route: 048
     Dates: start: 2007
  3. NEXIUM [Suspect]
     Indication: GASTROOESOPHAGEAL REFLUX DISEASE
     Dosage: REDUCED THE DOSE OF NEXIUM
     Route: 048
  4. ANTIBOTICS [Concomitant]
  5. CHINESE TRADITIONAL MEDICINE [Concomitant]

REACTIONS (2)
  - Purpura [Recovering/Resolving]
  - Platelet count decreased [Recovering/Resolving]
